FAERS Safety Report 7397281-1 (Version None)
Quarter: 2011Q2

REPORT INFORMATION
  Report Type: 
  Country: None (occurrence: None)
  Receive Date: 20110406
  Receipt Date: 20110328
  Transmission Date: 20111010
  Serious: Yes (Disabling)
  Sender: FDA-Public Use
  Company Number: SI-MILLENNIUM PHARMACEUTICALS, INC.-2011-01304

PATIENT

DRUGS (9)
  1. PAMITOR [Concomitant]
  2. ZALDIAR                            /01573601/ [Concomitant]
  3. SEVREDOL [Concomitant]
  4. ARANESP [Concomitant]
  5. DURAGESIC-100 [Concomitant]
  6. NEURONTIN [Concomitant]
  7. ALLOPURINOL [Concomitant]
  8. VELCADE [Suspect]
     Indication: PLASMACYTOMA
     Dosage: 2.7 MG/M2, UNK
     Route: 042
     Dates: start: 20100823, end: 20101108
  9. DEXAMETHASONE [Concomitant]

REACTIONS (3)
  - MUSCULAR WEAKNESS [None]
  - ABASIA [None]
  - PAIN IN EXTREMITY [None]
